FAERS Safety Report 8391449-3 (Version None)
Quarter: 2012Q2

REPORT INFORMATION
  Report Type: 
  Country: None (occurrence: None)
  Receive Date: 20120529
  Receipt Date: 20120516
  Transmission Date: 20120825
  Serious: Yes (Other)
  Sender: FDA-Public Use
  Company Number: US-ELI_LILLY_AND_COMPANY-US201204003874

PATIENT
  Sex: Female

DRUGS (12)
  1. FUROSEMIDE [Concomitant]
     Dosage: UNK
  2. OMEPRAZOLE [Concomitant]
     Dosage: UNK
  3. ASPIRIN [Concomitant]
     Dosage: UNK
  4. NOVOLOG [Concomitant]
     Indication: DIABETES MELLITUS
     Dosage: UNK
  5. IRON [Concomitant]
     Dosage: 65 MG, UNKNOWN
  6. CITRACAL                           /00751520/ [Concomitant]
     Dosage: UNK
  7. LIPITOR [Concomitant]
     Dosage: UNK
  8. LANTUS [Concomitant]
     Indication: DIABETES MELLITUS
     Dosage: UNK
  9. FORTEO [Suspect]
     Dosage: 20 UG, QD
     Route: 065
  10. CARVEDILOL [Concomitant]
     Dosage: UNK
  11. LEVOTHYROXINE SODIUM [Concomitant]
     Indication: THYROID DISORDER
     Dosage: UNK
  12. FORTEO [Suspect]
     Indication: OSTEOPOROSIS
     Dosage: 20 UG, QD
     Route: 065

REACTIONS (2)
  - FALL [None]
  - HIP FRACTURE [None]
